FAERS Safety Report 4695515-5 (Version None)
Quarter: 2005Q2

REPORT INFORMATION
  Report Type: 
  Country: None (occurrence: None)
  Receive Date: 20050621
  Receipt Date: 20050610
  Transmission Date: 20051028
  Serious: Yes (Disabling, Other)
  Sender: FDA-Public Use
  Company Number: PHBS2005MX08443

PATIENT
  Age: 69 Year
  Sex: Female
  Weight: 68 kg

DRUGS (3)
  1. AREDIA [Suspect]
     Indication: METASTASES TO BONE
     Dosage: 90 MG, QMO
     Route: 042
     Dates: start: 20010703, end: 20030221
  2. ZOMETA [Suspect]
     Indication: METASTASES TO BONE
     Dosage: 4 MG, QMO
     Route: 042
     Dates: start: 20030509, end: 20041014
  3. XELODA [Concomitant]
     Indication: METASTASES TO BONE
     Route: 065

REACTIONS (11)
  - BACTERIAL INFECTION [None]
  - GINGIVAL ULCERATION [None]
  - IMPAIRED HEALING [None]
  - INFLAMMATION [None]
  - NECROSIS [None]
  - OSTEOMYELITIS [None]
  - PLASTIC SURGERY [None]
  - SURGERY [None]
  - TOOTH ABSCESS [None]
  - TOOTH EXTRACTION [None]
  - WOUND DEBRIDEMENT [None]
